FAERS Safety Report 15408793 (Version 1)
Quarter: 2018Q3

REPORT INFORMATION
  Report Type: Spontaneous
  Country: US (occurrence: US)
  Receive Date: 20180920
  Receipt Date: 20180920
  Transmission Date: 20181010
  Serious: Yes (Other)
  Sender: FDA-Public Use
  Company Number: US-AMGEN-USASP2018129284

PATIENT
  Sex: Female

DRUGS (7)
  1. ENBREL [Suspect]
     Active Substance: ETANERCEPT
     Indication: RHEUMATOID ARTHRITIS
     Dosage: UNK
     Route: 065
     Dates: end: 20171006
  2. XELJANZ XR [Concomitant]
     Active Substance: TOFACITINIB CITRATE
     Dosage: 11 MG, QD
     Route: 048
  3. MTX [Suspect]
     Active Substance: METHOTREXATE SODIUM
     Dosage: UNK
     Route: 065
     Dates: end: 2018
  4. MTX [Suspect]
     Active Substance: METHOTREXATE SODIUM
     Indication: PRODUCT USED FOR UNKNOWN INDICATION
     Dosage: 25 MG/ML, QWK INJECTION
     Route: 058
  5. HUMIRA [Concomitant]
     Active Substance: ADALIMUMAB
     Dosage: UNK
  6. ARAVA [Concomitant]
     Active Substance: LEFLUNOMIDE
     Indication: RHEUMATOID ARTHRITIS
     Dosage: UNK
     Dates: end: 20160303
  7. HUMIRA [Concomitant]
     Active Substance: ADALIMUMAB
     Indication: RHEUMATOID ARTHRITIS
     Dosage: UNK
     Dates: end: 20171130

REACTIONS (7)
  - Blister [Recovered/Resolved]
  - Viral infection [Recovered/Resolved]
  - Vaginal mucosal blistering [Recovered/Resolved]
  - Bronchitis [Unknown]
  - Rheumatoid arthritis [Not Recovered/Not Resolved]
  - Sinusitis [Unknown]
  - Drug hypersensitivity [Unknown]
